FAERS Safety Report 13236710 (Version 2)
Quarter: 2017Q1

REPORT INFORMATION
  Report Type: Report from Study
  Country: GB (occurrence: GB)
  Receive Date: 20170215
  Receipt Date: 20170317
  Transmission Date: 20170428
  Serious: Yes (Other)
  Sender: FDA-Public Use
  Company Number: GB-BRISTOL-MYERS SQUIBB COMPANY-BMS-2016-022184

PATIENT
  Sex: Female

DRUGS (1)
  1. ABATACEPT [Suspect]
     Active Substance: ABATACEPT
     Indication: RHEUMATOID ARTHRITIS
     Dosage: 125 MG, QWK
     Route: 058
     Dates: start: 20151125

REACTIONS (7)
  - Rheumatoid arthritis [Unknown]
  - Lung infection [Unknown]
  - Ear infection [Unknown]
  - Arthralgia [Unknown]
  - Malaise [Unknown]
  - Lung disorder [Unknown]
  - Pneumonia [Unknown]
